FAERS Safety Report 9826225 (Version 1)
Quarter: 2014Q1

REPORT INFORMATION
  Report Type: Spontaneous
  Country: US (occurrence: US)
  Receive Date: 20140117
  Receipt Date: 20140117
  Transmission Date: 20141002
  Serious: No
  Sender: FDA-Public Use
  Company Number: US-009507513-1312USA012518

PATIENT
  Sex: Female

DRUGS (1)
  1. PROVENTIL [Suspect]
     Dosage: UNK
     Route: 055
     Dates: start: 201312

REACTIONS (4)
  - Underdose [Unknown]
  - Product container issue [Unknown]
  - Wrong technique in drug usage process [Unknown]
  - No adverse event [Unknown]
